FAERS Safety Report 9306194 (Version 1)
Quarter: 2013Q2

REPORT INFORMATION
  Report Type: Spontaneous
  Country: US (occurrence: US)
  Receive Date: 20130523
  Receipt Date: 20130523
  Transmission Date: 20140414
  Serious: Yes (Hospitalization)
  Sender: FDA-Public Use
  Company Number: US-GILEAD-2013-0074484

PATIENT
  Sex: Male

DRUGS (4)
  1. LETAIRIS [Suspect]
     Indication: PULMONARY HYPERTENSION
     Dosage: 10 MG, QD
     Route: 048
     Dates: start: 20100715
  2. LETAIRIS [Suspect]
     Indication: EMBOLISM
  3. VIAGRA [Concomitant]
  4. VENTAVIS [Concomitant]

REACTIONS (1)
  - Renal failure chronic [Unknown]
